FAERS Safety Report 4687338-8 (Version None)
Quarter: 2005Q2

REPORT INFORMATION
  Report Type: 
  Country: None (occurrence: None)
  Receive Date: 20050608
  Receipt Date: 20050601
  Transmission Date: 20051028
  Serious: Yes (Other)
  Sender: FDA-Public Use
  Company Number: C05-L-093

PATIENT
  Age: 7 Year
  Sex: Male
  Weight: 24.0406 kg

DRUGS (2)
  1. DYTAN CS SUSPENSION [Suspect]
     Indication: MULTIPLE ALLERGIES
     Dosage: 1 TSP BID
     Dates: start: 20050501
  2. SINGULAIR [Concomitant]

REACTIONS (2)
  - FATIGUE [None]
  - LOSS OF CONSCIOUSNESS [None]
